FAERS Safety Report 18960026 (Version 1)
Quarter: 2021Q1

REPORT INFORMATION
  Report Type: Report from Study
  Country: GB (occurrence: GB)
  Receive Date: 20210302
  Receipt Date: 20210302
  Transmission Date: 20210420
  Serious: Yes (Other)
  Sender: FDA-Public Use
  Company Number: GB-MYLANLABS-2021M1011914

PATIENT
  Age: 52 Year
  Sex: Female

DRUGS (36)
  1. COCODAMOL [Concomitant]
     Active Substance: ACETAMINOPHEN\CODEINE PHOSPHATE
     Dosage: UNK UNK, PRN
     Route: 048
     Dates: start: 20190719
  2. FEXOFENADINE [Concomitant]
     Active Substance: FEXOFENADINE HYDROCHLORIDE
     Dosage: 3 MILLIGRAM, QD
     Route: 048
     Dates: start: 20170504, end: 20170519
  3. DEXAFREE [Concomitant]
     Active Substance: DEXAMETHASONE SODIUM PHOSPHATE
     Dosage: 1 GTT DROPS, QD
     Route: 047
     Dates: start: 20191127
  4. PIRITON [Concomitant]
     Active Substance: CHLORPHENIRAMINE MALEATE
     Dosage: UNK UNK, QD
     Route: 048
     Dates: start: 20170503, end: 20170503
  5. ESTRIOL [Concomitant]
     Active Substance: ESTRIOL
     Dosage: 0.1% CREAM AS NEEDED.2?3 WEEKS
     Route: 067
     Dates: start: 20150415
  6. LOPERAMIDE [Concomitant]
     Active Substance: LOPERAMIDE
     Indication: DIARRHOEA
     Dosage: 1 DOSAGE FORM, PRN/1 CAPSULE AS NEEDED
     Route: 048
     Dates: start: 20150415
  7. OMEPRAZOLE. [Concomitant]
     Active Substance: OMEPRAZOLE
     Dosage: 20 MILLIGRAM
     Route: 048
     Dates: start: 20160212
  8. PIRITON [Concomitant]
     Active Substance: CHLORPHENIRAMINE MALEATE
     Dosage: 4 MILLIGRAM, MONTHLY
     Route: 048
     Dates: start: 201904, end: 20190502
  9. SALBUTAMOL [Concomitant]
     Active Substance: ALBUTEROL
     Dosage: 2 PUFF AS NEEDED
     Route: 065
     Dates: start: 20000418
  10. DEXAFREE [Concomitant]
     Active Substance: DEXAMETHASONE SODIUM PHOSPHATE
     Dosage: 1 GTT DROPS, QD
     Route: 047
     Dates: start: 20191119, end: 20191126
  11. EUCALYPTUS OIL [Concomitant]
     Active Substance: EUCALYPTUS OIL
     Dosage: UNK UNK, QD
     Route: 061
     Dates: start: 20191219, end: 20191219
  12. EURAX [Concomitant]
     Active Substance: CROTAMITON
     Dosage: UNK UNK, PRN/AS NEEDED
     Route: 061
     Dates: start: 20190516, end: 201906
  13. SYMBICORT [Concomitant]
     Active Substance: BUDESONIDE\FORMOTEROL FUMARATE DIHYDRATE
     Dosage: 1 PUFF AS NEEDED.
     Route: 065
     Dates: start: 20151115
  14. SYSTANE (HYPROMELLOSE 2910 (4000 MPA.S)) [Concomitant]
     Active Substance: HYPROMELLOSE 2910 (4000 MPA.S)
     Dosage: 1 GTT DROPS, PRN/AS NEEDED
     Route: 047
  15. TEA TREE OIL. [Concomitant]
     Active Substance: TEA TREE OIL
     Dosage: UNK, PRN/AS NEEDED
     Route: 047
     Dates: start: 20191029, end: 20191031
  16. LETROZOLE. [Suspect]
     Active Substance: LETROZOLE
     Indication: PRODUCT USED FOR UNKNOWN INDICATION
     Dosage: 2.5 MILLIGRAM, QD
     Route: 048
     Dates: start: 20160407
  17. TRASTUZUMAB. [Suspect]
     Active Substance: TRASTUZUMAB
     Indication: BREAST CANCER METASTATIC
     Dosage: 600 MILLIGRAM, Q3W
     Route: 058
     Dates: start: 20151231
  18. CETIRIZINE [Concomitant]
     Active Substance: CETIRIZINE HYDROCHLORIDE
     Dosage: DAILY AS NEEDED
     Route: 048
     Dates: start: 20170911
  19. PARACETAMOL [Concomitant]
     Active Substance: ACETAMINOPHEN
     Dosage: 1 GRAM, PRN/AS NEEDED
     Route: 048
     Dates: start: 2017
  20. PACLITAXEL. [Suspect]
     Active Substance: PACLITAXEL
     Indication: PRODUCT USED FOR UNKNOWN INDICATION
     Dosage: 111 GRAM, Q3W
     Route: 042
     Dates: start: 20160311, end: 20160324
  21. ACICLOVIR [Concomitant]
     Active Substance: ACYCLOVIR
     Dosage: UNK, BID
     Route: 048
     Dates: start: 20190606, end: 20190627
  22. EUMOVATE [Concomitant]
     Active Substance: CLOBETASONE BUTYRATE
     Dosage: UNK UNK, PRN/AS NEEDED
     Route: 061
     Dates: start: 201904, end: 20190502
  23. FEXOFENADINE [Concomitant]
     Active Substance: FEXOFENADINE HYDROCHLORIDE
     Dosage: 180 MILLIGRAM, PRN/AS NEEDED
     Route: 048
     Dates: start: 20190516
  24. MOMETASONE [Concomitant]
     Active Substance: MOMETASONE
     Dosage: 2 PUFF QD
     Route: 065
     Dates: start: 20120925
  25. ALMOND OIL [Concomitant]
     Active Substance: ALMOND OIL
     Dosage: UNK UNK, QD
     Route: 061
     Dates: start: 20191219, end: 20191219
  26. DOCETAXEL. [Suspect]
     Active Substance: DOCETAXEL
     Indication: PRODUCT USED FOR UNKNOWN INDICATION
     Dosage: 3 MILLIGRAM, Q3W
     Route: 042
     Dates: start: 20151231, end: 20160212
  27. CARBOMER [Concomitant]
     Active Substance: CARBOMER
     Dosage: 1 GTT DROPS, PRN/AS NEEDED
     Route: 047
     Dates: start: 20160706
  28. CLOBETASONE [Concomitant]
     Active Substance: CLOBETASONE
     Dosage: UNK
     Route: 061
  29. HYPROMELLOSE [Concomitant]
     Active Substance: HYPROMELLOSES
     Dosage: UNK
     Route: 065
     Dates: start: 20160831
  30. PARAFFIN WHITE [Concomitant]
     Dosage: AS NEEDED
     Route: 061
     Dates: start: 20180403
  31. PEPPERMINT OIL [Concomitant]
     Active Substance: PEPPERMINT OIL
     Dosage: UNK, QD
     Route: 061
     Dates: start: 20191219, end: 20191219
  32. FEXOFENADINE [Concomitant]
     Active Substance: FEXOFENADINE HYDROCHLORIDE
     Dosage: 180 MILLIGRAM, PRN/AS NEEDED
     Route: 048
     Dates: start: 20180222, end: 20180422
  33. FEXOFENADINE [Concomitant]
     Active Substance: FEXOFENADINE HYDROCHLORIDE
     Dosage: 180 MILLIGRAM, PRN/AS NEEDED
     Route: 048
     Dates: start: 20190516
  34. PIRITON [Concomitant]
     Active Substance: CHLORPHENIRAMINE MALEATE
     Dosage: 4 MILLIGRAM, 4?6 HOURLY
     Route: 048
     Dates: start: 20190502, end: 20190515
  35. EVENING PRIMROSE OIL [Concomitant]
     Active Substance: EVENING PRIMROSE OIL\HERBALS
     Dosage: UNK, QD
     Route: 048
     Dates: start: 2017
  36. SYMBICORT [Concomitant]
     Active Substance: BUDESONIDE\FORMOTEROL FUMARATE DIHYDRATE
     Dosage: UNK UNK, BID
     Route: 055
     Dates: start: 20190720

REACTIONS (9)
  - Alopecia [Recovered/Resolved]
  - Mass [Recovered/Resolved]
  - Neuropathy peripheral [Recovered/Resolved]
  - Nail disorder [Unknown]
  - Fatigue [Recovered/Resolved]
  - Skin ulcer [Recovered/Resolved]
  - Pain [Recovered/Resolved]
  - Abdominal pain [Recovered/Resolved]
  - Extravasation [Recovered/Resolved]

NARRATIVE: CASE EVENT DATE: 20160211
